FAERS Safety Report 11105929 (Version 1)
Quarter: 2015Q2

REPORT INFORMATION
  Report Type: Spontaneous
  Country: US (occurrence: None)
  Receive Date: 20150511
  Receipt Date: 20150511
  Transmission Date: 20150821
  Serious: Yes (Hospitalization)
  Sender: FDA-Public Use
  Company Number: None

PATIENT
  Age: 67 Year
  Sex: Male
  Weight: 90.2 kg

DRUGS (4)
  1. TAMSULOSIN [Concomitant]
     Active Substance: TAMSULOSIN
  2. INSULIN REGULAR [Concomitant]
     Active Substance: INSULIN NOS
  3. ENOXAPARIN SODIUM 100MG/ML SANDOZ [Suspect]
     Active Substance: ENOXAPARIN SODIUM
     Indication: CARDIAC VALVE PROSTHESIS USER
     Route: 058
     Dates: start: 20150430, end: 20150503
  4. NYSTATIN POWDER [Concomitant]

REACTIONS (3)
  - Aggression [None]
  - Agitation [None]
  - Haematoma [None]

NARRATIVE: CASE EVENT DATE: 20150502
